FAERS Safety Report 4313533-3 (Version None)
Quarter: 2004Q1

REPORT INFORMATION
  Report Type: 
  Country: None (occurrence: None)
  Receive Date: 20040308
  Receipt Date: 20040223
  Transmission Date: 20041129
  Serious: Yes (Death, Hospitalization)
  Sender: FDA-Public Use
  Company Number: FR-GLAXOSMITHKLINE-B0324210A

PATIENT
  Age: 59 Year
  Sex: Male
  Weight: 68 kg

DRUGS (17)
  1. ZOPHREN [Suspect]
     Indication: PROPHYLAXIS OF NAUSEA AND VOMITING
     Dosage: 16MG PER DAY
     Route: 048
     Dates: start: 20040108, end: 20040113
  2. TAXOTERE [Suspect]
     Indication: NON-SMALL CELL LUNG CANCER
     Dosage: 75MGM2 SEE DOSAGE TEXT
     Route: 042
     Dates: start: 20040108, end: 20040108
  3. PROZAC [Concomitant]
     Dosage: 80MG PER DAY
     Route: 048
  4. NEXIUM [Concomitant]
     Dosage: 80MG PER DAY
     Route: 048
     Dates: end: 20040115
  5. SOLUPRED [Concomitant]
     Dosage: 60MG PER DAY
     Route: 048
     Dates: end: 20040110
  6. ANAFRANIL [Concomitant]
     Dosage: 20MG PER DAY
     Route: 048
     Dates: end: 20040112
  7. DOLIPRANE [Concomitant]
  8. BUSPAR [Concomitant]
  9. FORLAX [Concomitant]
  10. MOTILIUM [Concomitant]
  11. VOGALENE [Concomitant]
  12. NEORECORMON [Concomitant]
     Dosage: 30000UNIT WEEKLY
     Route: 058
  13. TARDYFERON B9 [Concomitant]
  14. NEURONTIN [Concomitant]
     Dosage: 600MG THREE TIMES PER DAY
     Route: 048
  15. RADIOTHERAPY [Concomitant]
     Indication: BRONCHIAL CARCINOMA
     Dates: start: 20030901, end: 20031101
  16. CISPLATIN [Concomitant]
     Indication: BRONCHIAL CARCINOMA
     Dates: start: 20030901, end: 20031101
  17. NAVELBINE [Concomitant]
     Indication: BRONCHIAL CARCINOMA
     Dates: start: 20030901, end: 20031101

REACTIONS (8)
  - DYSPNOEA [None]
  - DYSPNOEA EXACERBATED [None]
  - HYPOXIA [None]
  - INTERSTITIAL LUNG DISEASE [None]
  - NORMOCHROMIC NORMOCYTIC ANAEMIA [None]
  - OXYGEN SATURATION DECREASED [None]
  - RESPIRATORY ALKALOSIS [None]
  - RESPIRATORY DEPRESSION [None]
